FAERS Safety Report 10182305 (Version 1)
Quarter: 2014Q2

REPORT INFORMATION
  Report Type: Spontaneous
  Country: FR (occurrence: FR)
  Receive Date: 20140520
  Receipt Date: 20140520
  Transmission Date: 20141212
  Serious: Yes (Death)
  Sender: FDA-Public Use
  Company Number: FR-MERCK-1405FRA007332

PATIENT
  Age: 92 Year
  Sex: Female

DRUGS (8)
  1. CANCIDAS [Suspect]
     Dosage: 1 DF, QD
     Route: 042
     Dates: start: 20140102, end: 20140103
  2. ORBENINE [Suspect]
     Dosage: 2 G, QID
     Route: 042
     Dates: start: 20140101, end: 20140116
  3. FLUCONAZOLE [Suspect]
     Dosage: UNK
     Route: 048
     Dates: start: 20140104, end: 20140119
  4. DIFFU-K [Suspect]
     Dosage: UNK
     Dates: start: 20140107, end: 20140112
  5. CALCIPARINE [Suspect]
     Dosage: UNK
     Route: 058
     Dates: start: 20140101, end: 20140115
  6. SOTALOL HYDROCHLORIDE [Concomitant]
  7. MIANSERIN HYDROCHLORIDE [Concomitant]
  8. LEVOTHYROX [Concomitant]

REACTIONS (4)
  - Thrombocytopenia [Fatal]
  - Gingival bleeding [Fatal]
  - Purpura [Fatal]
  - Mucosal haemorrhage [Fatal]
